FAERS Safety Report 11870843 (Version 1)
Quarter: 2015Q4

REPORT INFORMATION
  Report Type: Spontaneous
  Country: US (occurrence: US)
  Receive Date: 20151228
  Receipt Date: 20151228
  Transmission Date: 20160305
  Serious: Yes (Other)
  Sender: FDA-Public Use
  Company Number: US-BAYER-2015-494093

PATIENT
  Age: 71 Year
  Sex: Male
  Weight: 95.24 kg

DRUGS (6)
  1. GLUCOSAMINE [Concomitant]
     Active Substance: GLUCOSAMINE
  2. ALLOPURINOL. [Concomitant]
     Active Substance: ALLOPURINOL
  3. FISH OIL [Concomitant]
     Active Substance: FISH OIL
  4. ALEVE [Suspect]
     Active Substance: NAPROXEN SODIUM
     Indication: ARTHRALGIA
  5. MULTIVITAMIN [Concomitant]
     Active Substance: VITAMINS
  6. ALEVE [Suspect]
     Active Substance: NAPROXEN SODIUM
     Indication: INFLAMMATION
     Dosage: 2 DF, QD
     Route: 048
     Dates: start: 1989, end: 201511

REACTIONS (2)
  - Myocardial infarction [None]
  - Product use issue [None]

NARRATIVE: CASE EVENT DATE: 1989
